FAERS Safety Report 5461113-9 (Version None)
Quarter: 2007Q3

REPORT INFORMATION
  Report Type: 
  Country: None (occurrence: None)
  Receive Date: 20070920
  Receipt Date: 20070913
  Transmission Date: 20080115
  Serious: Yes (Hospitalization)
  Sender: FDA-Public Use
  Company Number: PHBS2007NL14985

PATIENT

DRUGS (1)
  1. SANDOSTATIN [Suspect]
     Indication: OEDEMA

REACTIONS (1)
  - CHOLECYSTECTOMY [None]
